FAERS Safety Report 9858162 (Version 2)
Quarter: 2014Q1

REPORT INFORMATION
  Report Type: Report from Study
  Country: BR (occurrence: BR)
  Receive Date: 20140131
  Receipt Date: 20140131
  Transmission Date: 20141002
  Serious: Yes (Other)
  Sender: FDA-Public Use
  Company Number: BR-ROCHE-1323731

PATIENT
  Sex: Female
  Weight: 60 kg

DRUGS (6)
  1. MABTHERA [Suspect]
     Indication: SYSTEMIC LUPUS ERYTHEMATOSUS
     Route: 042
     Dates: start: 20110428, end: 20110622
  2. LOSARTAN [Concomitant]
  3. HYDROCHLOROTHIAZIDE [Concomitant]
  4. CAPTOPRIL [Concomitant]
  5. CAPOTEN (BRAZIL) [Concomitant]
  6. BUPROPION [Concomitant]
     Indication: DEPRESSION

REACTIONS (7)
  - Systemic lupus erythematosus [Unknown]
  - Pain [Recovering/Resolving]
  - Local swelling [Recovered/Resolved]
  - Joint swelling [Recovered/Resolved]
  - Osteoporosis [Not Recovered/Not Resolved]
  - Oropharyngeal pain [Recovered/Resolved]
  - Chapped lips [Recovered/Resolved]
